FAERS Safety Report 15721372 (Version 3)
Quarter: 2019Q2

REPORT INFORMATION
  Report Type: Spontaneous
  Country: US (occurrence: US)
  Receive Date: 20181214
  Receipt Date: 20190425
  Transmission Date: 20190711
  Serious: No
  Sender: FDA-Public Use
  Company Number: US-BIOGEN-2018BI00669225

PATIENT
  Sex: Female
  Weight: 133.02 kg

DRUGS (5)
  1. TECFIDERA [Suspect]
     Active Substance: DIMETHYL FUMARATE
     Indication: MULTIPLE SCLEROSIS
     Route: 050
     Dates: end: 201811
  2. PREDNISONE. [Concomitant]
     Active Substance: PREDNISONE
     Route: 050
  3. RELISTOR [Concomitant]
     Active Substance: METHYLNALTREXONE BROMIDE
     Route: 050
  4. OMEPRAZOLE. [Concomitant]
     Active Substance: OMEPRAZOLE
     Route: 050
  5. METOPROLOL. [Concomitant]
     Active Substance: METOPROLOL
     Route: 050

REACTIONS (4)
  - Urinary tract infection [Unknown]
  - Multiple sclerosis [Unknown]
  - Insomnia [Unknown]
  - Depression [Recovered/Resolved]
